FAERS Safety Report 25653816 (Version 3)
Quarter: 2025Q4

REPORT INFORMATION
  Report Type: Spontaneous
  Country: US (occurrence: US)
  Receive Date: 20250807
  Receipt Date: 20251114
  Transmission Date: 20260119
  Serious: No
  Sender: SANOFI AVENTIS
  Company Number: US-SA-2025SA230989

PATIENT
  Age: 26 Year
  Sex: Female

DRUGS (1)
  1. DUPIXENT [Suspect]
     Active Substance: DUPILUMAB
     Indication: Dermatitis atopic
     Dosage: 300 MG, QOW
     Route: 058

REACTIONS (9)
  - Dry skin [Unknown]
  - Miliaria [Unknown]
  - Skin exfoliation [Unknown]
  - Pain of skin [Unknown]
  - Dermatitis atopic [Unknown]
  - Swelling [Unknown]
  - Pustule [Unknown]
  - Pruritus [Unknown]
  - Erythema [Unknown]
